FAERS Safety Report 18855725 (Version 2)
Quarter: 2021Q2

REPORT INFORMATION
  Report Type: Spontaneous
  Country: CA (occurrence: CA)
  Receive Date: 20210205
  Receipt Date: 20210426
  Transmission Date: 20210717
  Serious: Yes (Other)
  Sender: FDA-Public Use
  Company Number: CA-ELI_LILLY_AND_COMPANY-CA202101011750

PATIENT
  Sex: Male

DRUGS (3)
  1. BASAGLAR [Suspect]
     Active Substance: INSULIN GLARGINE
     Dosage: UNK UNK, UNKNOWN
     Route: 065
     Dates: start: 2012
  2. TRESIBA [Suspect]
     Active Substance: INSULIN DEGLUDEC
     Indication: PRODUCT USED FOR UNKNOWN INDICATION
     Dosage: UNK, UNKNOWN
     Route: 065
  3. NOVORAPID [Concomitant]
     Active Substance: INSULIN ASPART
     Indication: PRODUCT USED FOR UNKNOWN INDICATION
     Dosage: UNK, UNKNOWN
     Route: 065

REACTIONS (11)
  - Respiratory disorder [Unknown]
  - Blood pressure increased [Unknown]
  - Hypoglycaemia [Unknown]
  - Lung disorder [Unknown]
  - Fall [Unknown]
  - Dysstasia [Unknown]
  - Headache [Unknown]
  - Cardiovascular disorder [Unknown]
  - Fall [Unknown]
  - Fatigue [Unknown]
  - Dysuria [Unknown]

NARRATIVE: CASE EVENT DATE: 2018
